FAERS Safety Report 23877376 (Version 1)
Quarter: 2024Q2

REPORT INFORMATION
  Report Type: Spontaneous
  Country: FR (occurrence: None)
  Receive Date: 20240521
  Receipt Date: 20240521
  Transmission Date: 20240716
  Serious: Yes (Death)
  Sender: FDA-Public Use
  Company Number: 2024A115111

PATIENT
  Age: 76 Year
  Sex: Male
  Weight: 72 kg

DRUGS (2)
  1. XIGDUO XR [Suspect]
     Active Substance: DAPAGLIFLOZIN PROPANEDIOL\METFORMIN HYDROCHLORIDE
     Indication: Coronary artery bypass
     Route: 048
     Dates: start: 20230622, end: 202401
  2. VILDAGLIPTIN [Suspect]
     Active Substance: VILDAGLIPTIN
     Indication: Type 2 diabetes mellitus
     Route: 048
     Dates: start: 202306, end: 202401

REACTIONS (5)
  - Leg amputation [Fatal]
  - Toe amputation [Fatal]
  - Osteitis [Fatal]
  - Fungating wound [Fatal]
  - Sepsis [Fatal]

NARRATIVE: CASE EVENT DATE: 20231201
